FAERS Safety Report 4405269-5 (Version None)
Quarter: 2004Q3

REPORT INFORMATION
  Report Type: 
  Country: None (occurrence: None)
  Receive Date: 20040715
  Receipt Date: 20040702
  Transmission Date: 20050211
  Serious: Yes (Hospitalization, Other)
  Sender: FDA-Public Use
  Company Number: 2004043615

PATIENT
  Age: 53 Year
  Sex: Female

DRUGS (5)
  1. NEURONTIN [Suspect]
     Indication: NEUROPATHIC PAIN
     Dosage: 900 MG (300 MG, 3 IN 1 D) ORAL
     Route: 048
     Dates: end: 20030128
  2. CARISOPRODOL [Concomitant]
  3. PARACETAMOL [Concomitant]
  4. CODEINE PHOSPHATE AND ACETAMINOPHEN [Concomitant]
  5. DIAZEPAM [Concomitant]

REACTIONS (5)
  - FATIGUE [None]
  - HEADACHE [None]
  - LOSS OF CONSCIOUSNESS [None]
  - SOMNOLENCE [None]
  - TREMOR [None]
